FAERS Safety Report 12262669 (Version 1)
Quarter: 2016Q2

REPORT INFORMATION
  Report Type: Spontaneous
  Country: US (occurrence: US)
  Receive Date: 20160413
  Receipt Date: 20160413
  Transmission Date: 20160815
  Serious: No
  Sender: FDA-Public Use
  Company Number: US-BIO PRODUCTS LABORATORY LTD-1050500

PATIENT
  Age: 18 Year
  Sex: Male

DRUGS (3)
  1. RETINOL A [Concomitant]
     Route: 061
  2. COAGADEX [Suspect]
     Active Substance: COAGULATION FACTOR X HUMAN
     Indication: FACTOR X DEFICIENCY
     Route: 041
     Dates: start: 20160406
  3. CLINDAMYCIN BENZOYL PEROXIDE [Concomitant]
     Route: 061

REACTIONS (5)
  - Urticaria [Recovered/Resolved]
  - Pruritus generalised [Recovered/Resolved]
  - Abdominal pain [Recovered/Resolved]
  - Cough [Recovered/Resolved]
  - Dizziness [Recovered/Resolved]
